FAERS Safety Report 8836296 (Version 2)
Quarter: 2012Q4

REPORT INFORMATION
  Report Type: 
  Country: JP (occurrence: JP)
  Receive Date: 20121011
  Receipt Date: 20121102
  Transmission Date: 20130627
  Serious: Yes (Hospitalization)
  Sender: FDA-Public Use
  Company Number: JP-B.I. PHARMACEUTICALS,INC./RIDGEFIELD-2012-EU-05111GD

PATIENT
  Age: 73 Year
  Sex: Male
  Weight: 62 kg

DRUGS (4)
  1. PRADAXA [Suspect]
     Indication: THROMBOSIS PROPHYLAXIS
     Dosage: 300 mg
     Route: 048
     Dates: start: 20111121, end: 20111123
  2. PRADAXA [Suspect]
     Dosage: 220 mg
     Route: 048
     Dates: start: 20111124, end: 20111128
  3. SODIUM RABEPRAZOLE [Concomitant]
     Indication: HAEMORRHAGE PROPHYLAXIS
     Dosage: 10 mg
     Route: 048
     Dates: start: 20111120
  4. MERCAZOLE [Concomitant]
     Indication: HYPERTHYROIDISM
     Dosage: 5 mg
     Route: 048
     Dates: start: 20111120

REACTIONS (2)
  - Cerebral infarction [Recovered/Resolved]
  - Cerebral infarction [Recovered/Resolved]
